FAERS Safety Report 4348719-5 (Version None)
Quarter: 2004Q2

REPORT INFORMATION
  Report Type: 
  Country: None (occurrence: None)
  Receive Date: 20040423
  Receipt Date: 20040408
  Transmission Date: 20050107
  Serious: Yes (Other)
  Sender: FDA-Public Use
  Company Number: 231675K04USA

PATIENT
  Age: 50 Year
  Sex: Female

DRUGS (4)
  1. REBIF [Suspect]
     Indication: MULTIPLE SCLEROSIS
     Dosage: 4 MCG. 3 IN 1 WEEKS, SUBCUTANEOUS
     Route: 058
     Dates: start: 20030701, end: 20040407
  2. GABAPENTIN [Concomitant]
  3. AMANTADINE HCL [Concomitant]
  4. IBUPROFEN [Concomitant]

REACTIONS (3)
  - BLOOD CREATININE INCREASED [None]
  - PROTEINURIA [None]
  - RENAL IMPAIRMENT [None]
